FAERS Safety Report 24642063 (Version 1)
Quarter: 2024Q4

REPORT INFORMATION
  Report Type: Spontaneous
  Country: US (occurrence: US)
  Receive Date: 20241120
  Receipt Date: 20241120
  Transmission Date: 20250114
  Serious: Yes (Life-Threatening)
  Sender: PFIZER
  Company Number: US-PFIZER INC-PV202400148536

PATIENT
  Age: 62 Year
  Sex: Male

DRUGS (2)
  1. ERYTHROMYCIN [Suspect]
     Active Substance: ERYTHROMYCIN
     Indication: Osteomyelitis
     Dosage: 500 MG, 4X/DAY
  2. DOXYCYCLINE [Concomitant]
     Active Substance: DOXYCYCLINE
     Indication: Osteomyelitis
     Dosage: 100 MG, 2X/DAY

REACTIONS (1)
  - Diarrhoea [Unknown]
